FAERS Safety Report 11634887 (Version 1)
Quarter: 2015Q4

REPORT INFORMATION
  Report Type: Report from Study
  Country: US (occurrence: US)
  Receive Date: 20151015
  Receipt Date: 20151015
  Transmission Date: 20160304
  Serious: Yes (Hospitalization)
  Sender: FDA-Public Use
  Company Number: US-BIOMARINAP-US-2015-107624

PATIENT
  Age: 24 Day
  Sex: Female
  Weight: 3.26 kg

DRUGS (1)
  1. KUVAN [Suspect]
     Active Substance: SAPROPTERIN DIHYDROCHLORIDE
     Indication: PRODUCT USED FOR UNKNOWN INDICATION
     Dosage: 20 MG/KG, QD
     Route: 064
     Dates: start: 200705

REACTIONS (1)
  - Pyloric stenosis [Recovered/Resolved]

NARRATIVE: CASE EVENT DATE: 20150527
